FAERS Safety Report 25130808 (Version 1)
Quarter: 2025Q1

REPORT INFORMATION
  Report Type: Spontaneous
  Country: US (occurrence: US)
  Receive Date: 20250327
  Receipt Date: 20250327
  Transmission Date: 20250409
  Serious: No
  Sender: VERTEX
  Company Number: US-VERTEX PHARMACEUTICALS-2024-000214

PATIENT
  Age: 2 Year
  Sex: Female
  Weight: 14 kg

DRUGS (3)
  1. TRIKAFTA [Suspect]
     Active Substance: ELEXACAFTOR\IVACAFTOR\TEZACAFTOR
     Indication: Cystic fibrosis
     Dosage: (80 MG ELEXA/ 40 MG TEZA/ 60MG IVA AND 59.5 MG IVA) IN AM AND PM
     Route: 048
     Dates: start: 20231208
  2. TRIKAFTA [Suspect]
     Active Substance: ELEXACAFTOR\IVACAFTOR\TEZACAFTOR
     Dosage: 2 ORANGE TAB (50 MG ELEXA/ 25MG TEZ/ 37.5 MG IVA) IN PM AND 1 BLUE TAB (75 MG IVA) IN AM
     Route: 048
     Dates: start: 20231219
  3. TRIKAFTA [Suspect]
     Active Substance: ELEXACAFTOR\IVACAFTOR\TEZACAFTOR
     Dosage: AM DOSE IN PM, PM DOSE IN AM
     Route: 048
     Dates: start: 2024

REACTIONS (3)
  - Terminal insomnia [Recovered/Resolved]
  - Initial insomnia [Recovered/Resolved]
  - Middle insomnia [Recovered/Resolved]

NARRATIVE: CASE EVENT DATE: 20231201
